FAERS Safety Report 5749840-7 (Version None)
Quarter: 2008Q2

REPORT INFORMATION
  Report Type: 
  Country: None (occurrence: None)
  Receive Date: 20080527
  Receipt Date: 20080520
  Transmission Date: 20081010
  Serious: Yes (Hospitalization)
  Sender: FDA-Public Use
  Company Number: US-ELI_LILLY_AND_COMPANY-US200805004188

PATIENT
  Sex: Male

DRUGS (11)
  1. ALIMTA [Suspect]
     Indication: MESOTHELIOMA
     Dosage: 980 MG, UNK
     Route: 042
  2. CISPLATIN [Concomitant]
     Indication: MESOTHELIOMA
     Dates: end: 20080317
  3. MULTI-VITAMIN [Concomitant]
  4. FOLIC ACID [Concomitant]
     Indication: PREMEDICATION
  5. NORTRIPTYLINE HCL [Concomitant]
  6. OMEPRAZOLE [Concomitant]
  7. ALBUTEROL [Concomitant]
  8. ATENOLOL [Concomitant]
  9. ADVAIR DISKUS 100/50 [Concomitant]
  10. ZOFRAN [Concomitant]
     Indication: NAUSEA
  11. VITAMIN B-12 [Concomitant]
     Indication: PREMEDICATION

REACTIONS (4)
  - ERYTHEMA [None]
  - FEELING HOT [None]
  - LOSS OF CONSCIOUSNESS [None]
  - PRURITUS [None]
